FAERS Safety Report 8936592 (Version 1)
Quarter: 2012Q4

REPORT INFORMATION
  Report Type: 
  Country: US (occurrence: US)
  Receive Date: 20121130
  Receipt Date: 20121130
  Transmission Date: 20130627
  Serious: Yes (Other)
  Sender: FDA-Public Use
  Company Number: US-ACTELION-A-US2012-73890

PATIENT
  Age: 8 Year
  Sex: Female

DRUGS (4)
  1. TRACLEER [Suspect]
     Indication: PULMONARY ARTERIAL HYPERTENSION
     Dosage: 31.25 mg, UNK
     Route: 048
     Dates: start: 201110, end: 20121015
  2. TRACLEER [Suspect]
     Dosage: 15.6 mg, bid
     Route: 048
     Dates: start: 201108, end: 201110
  3. COUMADIN [Suspect]
     Dosage: UNK
     Route: 048
  4. ASPIRIN [Concomitant]

REACTIONS (4)
  - Cardiac operation [Unknown]
  - Drug ineffective [Unknown]
  - Drug interaction [Unknown]
  - Catheterisation cardiac [Unknown]
